FAERS Safety Report 5048013-3 (Version None)
Quarter: 2006Q3

REPORT INFORMATION
  Report Type: 
  Country: None (occurrence: None)
  Receive Date: 20060710
  Receipt Date: 20060710
  Transmission Date: 20061208
  Serious: No
  Sender: FDA-Public Use
  Company Number: None

PATIENT
  Sex: Male
  Weight: 99.7913 kg

DRUGS (1)
  1. CORDIS   CYPHER SIROLIMUS-ELUTING CORONARY STENT [Suspect]
     Dates: start: 20060625

REACTIONS (11)
  - CHEST DISCOMFORT [None]
  - DYSGEUSIA [None]
  - FATIGUE [None]
  - HYPOVENTILATION [None]
  - MYDRIASIS [None]
  - NASAL DISCOMFORT [None]
  - ORAL PAIN [None]
  - PRURITUS [None]
  - STOMACH DISCOMFORT [None]
  - URTICARIA [None]
  - VISUAL BRIGHTNESS [None]
